FAERS Safety Report 24139922 (Version 1)
Quarter: 2024Q3

REPORT INFORMATION
  Report Type: Spontaneous
  Country: US (occurrence: US)
  Receive Date: 20240726
  Receipt Date: 20240726
  Transmission Date: 20241017
  Serious: No
  Sender: ROCHE
  Company Number: US-ROCHE-10000030968

PATIENT
  Age: 44 Year
  Sex: Female
  Weight: 86.18 kg

DRUGS (1)
  1. OCREVUS [Suspect]
     Active Substance: OCRELIZUMAB
     Indication: Multiple sclerosis
     Route: 042
     Dates: end: 202304

REACTIONS (12)
  - Nausea [Recovered/Resolved]
  - Vomiting [Recovered/Resolved]
  - Skin disorder [Not Recovered/Not Resolved]
  - Fall [Recovered/Resolved]
  - Skin laceration [Recovered/Resolved]
  - Back injury [Recovered/Resolved]
  - Limb injury [Recovered/Resolved]
  - Gait disturbance [Not Recovered/Not Resolved]
  - Lethargy [Unknown]
  - Weight increased [Unknown]
  - Vomiting [Unknown]
  - Tooth loss [Recovered/Resolved]

NARRATIVE: CASE EVENT DATE: 20190301
